FAERS Safety Report 7206636-7 (Version None)
Quarter: 2011Q1

REPORT INFORMATION
  Report Type: 
  Country: None (occurrence: None)
  Receive Date: 20110103
  Receipt Date: 20101229
  Transmission Date: 20110831
  Serious: Yes (Other)
  Sender: FDA-Public Use
  Company Number: US-JNJFOC-20100201988

PATIENT
  Sex: Female
  Weight: 62.6 kg

DRUGS (7)
  1. DESERRIL [Concomitant]
     Indication: SLEEP DISORDER
     Dosage: DOSE: 100 TO 300 MG 1 TO 3 TIMES A DAY AS NEEDED
     Route: 048
  2. DURAGESIC-50 [Suspect]
     Route: 062
  3. DURAGESIC-50 [Suspect]
     Route: 062
  4. DURAGESIC-50 [Suspect]
     Indication: INTERVERTEBRAL DISC PROTRUSION
     Route: 062
  5. DURAGESIC-50 [Suspect]
     Indication: BACK PAIN
     Route: 062
  6. DURAGESIC-50 [Suspect]
     Route: 062
  7. DURAGESIC-50 [Suspect]
     Indication: PRODUCT USED FOR UNKNOWN INDICATION
     Route: 062

REACTIONS (20)
  - NERVOUS SYSTEM DISORDER [None]
  - PNEUMONIA [None]
  - ADVERSE EVENT [None]
  - CONTUSION [None]
  - DEPRESSION [None]
  - BENIGN NEOPLASM [None]
  - BRAIN NEOPLASM [None]
  - PAIN [None]
  - BLOOD CHOLESTEROL INCREASED [None]
  - DRUG INEFFECTIVE [None]
  - FORMICATION [None]
  - NEOPLASM MALIGNANT [None]
  - SENSORY LOSS [None]
  - AMNESIA [None]
  - DETOXIFICATION [None]
  - BACK PAIN [None]
  - BRONCHITIS [None]
  - PERIPHERAL SENSORY NEUROPATHY [None]
  - FALL [None]
  - DEMENTIA [None]
